FAERS Safety Report 7701523-X (Version None)
Quarter: 2011Q3

REPORT INFORMATION
  Report Type: 
  Country: None (occurrence: None)
  Receive Date: 20110822
  Receipt Date: 20110812
  Transmission Date: 20111222
  Serious: Yes (Hospitalization)
  Sender: FDA-Public Use
  Company Number: US-MERCK-1101USA00610

PATIENT
  Age: 57 Year
  Sex: Female

DRUGS (9)
  1. FOSAMAX [Suspect]
     Route: 048
     Dates: start: 20070701, end: 20090101
  2. FOSAMAX PLUS D [Suspect]
     Route: 048
     Dates: start: 20080301
  3. CELEXA [Concomitant]
     Route: 065
     Dates: start: 19950101
  4. CENTRUM [Concomitant]
     Route: 065
  5. ACTONEL [Suspect]
     Route: 065
     Dates: start: 20030601, end: 20070701
  6. ALENDRONATE SODIUM [Suspect]
     Indication: OSTEOPENIA
     Route: 048
     Dates: start: 20040101, end: 20090101
  7. ACTONEL [Suspect]
     Indication: OSTEOPENIA
     Route: 065
     Dates: start: 20030101, end: 20090101
  8. FOSAMAX [Suspect]
     Indication: OSTEOPENIA
     Route: 048
     Dates: start: 20030101, end: 20081201
  9. ACTONEL [Suspect]
     Route: 065
     Dates: start: 19990101, end: 20040601

REACTIONS (23)
  - ANXIETY [None]
  - HERPES ZOSTER [None]
  - BONE MARROW OEDEMA [None]
  - BURSITIS [None]
  - VITAMIN D DEFICIENCY [None]
  - HYPERLIPIDAEMIA [None]
  - PLEURAL EFFUSION [None]
  - FALL [None]
  - OSTEOARTHRITIS [None]
  - PNEUMONIA [None]
  - BONE DENSITY DECREASED [None]
  - MUSCLE STRAIN [None]
  - CALCIUM DEFICIENCY [None]
  - LUNG NEOPLASM [None]
  - FOOT FRACTURE [None]
  - FEMUR FRACTURE [None]
  - FRACTURE DELAYED UNION [None]
  - LOW TURNOVER OSTEOPATHY [None]
  - DEPRESSION [None]
  - DEVICE COMPONENT ISSUE [None]
  - ANAEMIA [None]
  - VITREOUS FLOATERS [None]
  - LUNG INFILTRATION [None]
